FAERS Safety Report 7430931-X (Version None)
Quarter: 2011Q2

REPORT INFORMATION
  Report Type: 
  Country: None (occurrence: None)
  Receive Date: 20110419
  Receipt Date: 20110419
  Transmission Date: 20111010
  Serious: No
  Sender: FDA-Public Use
  Company Number: None

PATIENT
  Sex: Female

DRUGS (1)
  1. ENBREL 25MG AMGEN BIW SQ [Suspect]
     Indication: RHEUMATOID ARTHRITIS
     Dosage: 25MG BIW SQ
     Route: 058
     Dates: start: 20110324

REACTIONS (3)
  - CONTUSION [None]
  - ERYTHEMA [None]
  - BLISTER [None]
